FAERS Safety Report 8832149 (Version 1)
Quarter: 2012Q4

REPORT INFORMATION
  Report Type: 
  Country: US (occurrence: US)
  Receive Date: 20121009
  Receipt Date: 20121009
  Transmission Date: 20130627
  Serious: Yes (Other)
  Sender: FDA-Public Use
  Company Number: US-ROCHE-1135232

PATIENT
  Sex: Female
  Weight: 90.8 kg

DRUGS (1)
  1. ACTEMRA [Suspect]
     Indication: RHEUMATOID ARTHRITIS
     Route: 042

REACTIONS (15)
  - Loss of consciousness [Unknown]
  - Abdominal pain upper [Unknown]
  - Heart rate increased [Unknown]
  - Heart rate irregular [Unknown]
  - Burning sensation [Unknown]
  - Swelling face [Unknown]
  - Vomiting [Unknown]
  - Diarrhoea [Unknown]
  - Asthenia [Unknown]
  - Gastric disorder [Unknown]
  - Dyspnoea [Unknown]
  - Blood pressure increased [Unknown]
  - Feeling abnormal [Unknown]
  - Dizziness [Unknown]
  - Erythema [Unknown]
